FAERS Safety Report 4589976-X (Version None)
Quarter: 2005Q1

REPORT INFORMATION
  Report Type: 
  Country: None (occurrence: None)
  Receive Date: 20050125
  Receipt Date: 20040830
  Transmission Date: 20050727
  Serious: No
  Sender: FDA-Public Use
  Company Number: USA040773564

PATIENT
  Age: 58 Year
  Sex: Female

DRUGS (2)
  1. FORTEO [Suspect]
     Indication: OSTEOPOROSIS
     Dosage: 20 UG EVERY OTHER DAY
     Dates: start: 20040722
  2. CALCIUM GLUCONATE [Concomitant]

REACTIONS (9)
  - DECREASED APPETITE [None]
  - DIZZINESS [None]
  - FEELING ABNORMAL [None]
  - HYPOTENSION [None]
  - INJECTION SITE PAIN [None]
  - MUSCLE FATIGUE [None]
  - NAUSEA [None]
  - RIB FRACTURE [None]
  - STOMACH DISCOMFORT [None]
